FAERS Safety Report 8900892 (Version 3)
Quarter: 2013Q3

REPORT INFORMATION
  Report Type: Report from Study
  Country: PS (occurrence: PS)
  Receive Date: 20121109
  Receipt Date: 20130813
  Transmission Date: 20140515
  Serious: No
  Sender: FDA-Public Use
  Company Number: PS-INCYTE CORPORATION-2012IN002254

PATIENT
  Sex: Female

DRUGS (1)
  1. INC424 [Suspect]
     Indication: MYELOFIBROSIS
     Dosage: 20 MG, BID
     Route: 048
     Dates: start: 20121030

REACTIONS (1)
  - Haematemesis [Recovered/Resolved]
